FAERS Safety Report 7961993-9 (Version None)
Quarter: 2011Q4

REPORT INFORMATION
  Report Type: 
  Country: None (occurrence: None)
  Receive Date: 20111207
  Receipt Date: 20111129
  Transmission Date: 20120403
  Serious: Yes (Hospitalization)
  Sender: FDA-Public Use
  Company Number: DE-ROCHE-1016139

PATIENT
  Age: 63 Year
  Sex: Female

DRUGS (8)
  1. AVASTIN [Suspect]
     Dates: start: 20111205
  2. TAMOXIFEN [Concomitant]
     Dates: start: 20110519
  3. METHIMAZOLE [Concomitant]
     Dosage: 90 GTTS
  4. IBANDRONATE SODIUM [Concomitant]
     Dates: start: 20110701
  5. DOXORUBICIN HCL [Suspect]
     Indication: BREAST CANCER METASTATIC
     Route: 042
     Dates: start: 20111107, end: 20111118
  6. CYCLOPHOSPHAMIDE [Suspect]
     Indication: BREAST CANCER METASTATIC
     Route: 042
     Dates: start: 20111107, end: 20111108
  7. AVASTIN [Suspect]
     Indication: BREAST CANCER METASTATIC
     Route: 042
     Dates: start: 20111107, end: 20111118
  8. DOXORUBICIN HCL [Suspect]
     Dates: start: 20111205

REACTIONS (4)
  - BLOOD LACTATE DEHYDROGENASE INCREASED [None]
  - ASPARTATE AMINOTRANSFERASE INCREASED [None]
  - ALANINE AMINOTRANSFERASE INCREASED [None]
  - FEBRILE NEUTROPENIA [None]
